FAERS Safety Report 16218551 (Version 3)
Quarter: 2019Q2

REPORT INFORMATION
  Report Type: Spontaneous
  Country: TR (occurrence: TR)
  Receive Date: 20190419
  Receipt Date: 20190520
  Transmission Date: 20190711
  Serious: Yes (Other)
  Sender: FDA-Public Use
  Company Number: TR-ASTRAZENECA-2019SE58504

PATIENT
  Age: 22609 Day
  Sex: Male
  Weight: 84 kg

DRUGS (10)
  1. GALVUS MET [Concomitant]
     Active Substance: METFORMIN HYDROCHLORIDE\VILDAGLIPTIN
     Indication: TYPE 2 DIABETES MELLITUS
     Dosage: 2X 50/1000 MG DAILY
     Route: 048
     Dates: start: 2015
  2. FORZIGA [Suspect]
     Active Substance: DAPAGLIFLOZIN
     Indication: TYPE 2 DIABETES MELLITUS
     Route: 048
     Dates: start: 20190313, end: 20190327
  3. LEVEMIR [Concomitant]
     Active Substance: INSULIN DETEMIR
     Indication: TYPE 2 DIABETES MELLITUS
     Route: 058
     Dates: start: 2013
  4. BENEDAY [Concomitant]
     Dosage: 1X1
  5. MONOKET LONG [Concomitant]
     Indication: MYOCARDIAL ISCHAEMIA
     Route: 048
     Dates: start: 2008
  6. NOVORAPID INSULINE [Concomitant]
     Indication: TYPE 2 DIABETES MELLITUS
     Route: 058
     Dates: start: 2018
  7. PLAVIX [Concomitant]
     Active Substance: CLOPIDOGREL BISULFATE
     Indication: CORONARY ARTERY DISEASE
     Route: 048
     Dates: start: 2008
  8. ECOPRIN [Concomitant]
     Indication: CORONARY ARTERY DISEASE
     Route: 048
     Dates: start: 2008
  9. CORASPIN [Concomitant]
     Active Substance: ASPIRIN
     Dosage: 1X100
  10. MONOKET LONG [Concomitant]
     Indication: CORONARY ARTERY DISEASE
     Route: 048
     Dates: start: 2008

REACTIONS (2)
  - Neuralgia [Recovering/Resolving]
  - Pruritus [Recovered/Resolved]

NARRATIVE: CASE EVENT DATE: 20190315
